FAERS Safety Report 7901524-2 (Version None)
Quarter: 2011Q4

REPORT INFORMATION
  Report Type: 
  Country: None (occurrence: None)
  Receive Date: 20111108
  Receipt Date: 20111107
  Transmission Date: 20120403
  Serious: Yes (Hospitalization)
  Sender: FDA-Public Use
  Company Number: AR-ROCHE-1007681

PATIENT
  Age: 50 Year
  Sex: Female
  Weight: 93 kg

DRUGS (2)
  1. ACTEMRA [Suspect]
     Dosage: FREQUENCY: Q4S
     Route: 042
     Dates: start: 20110711
  2. ACTEMRA [Suspect]
     Indication: RHEUMATOID ARTHRITIS
     Dosage: FREQUENCY: QS
     Route: 058
     Dates: start: 20110711

REACTIONS (1)
  - VENOUS THROMBOSIS LIMB [None]
